FAERS Safety Report 15396497 (Version 3)
Quarter: 2018Q4

REPORT INFORMATION
  Report Type: Report from Study
  Country: DE (occurrence: DE)
  Receive Date: 20180918
  Receipt Date: 20181024
  Transmission Date: 20190204
  Serious: Yes (Hospitalization)
  Sender: FDA-Public Use
  Company Number: PHHY2018DE095873

PATIENT
  Age: 51 Year
  Sex: Female
  Weight: 67 kg

DRUGS (12)
  1. XARELTO [Concomitant]
     Active Substance: RIVAROXABAN
     Indication: PRODUCT USED FOR UNKNOWN INDICATION
     Dosage: 1 DF (15 MG), QD (1 IN THE MORNING )
     Route: 065
     Dates: start: 20180712
  2. BISOPROLOL [Concomitant]
     Active Substance: BISOPROLOL
     Indication: PRODUCT USED FOR UNKNOWN INDICATION
     Dosage: 0.5 DF, QD (A HALF IN THE MORNING)
     Route: 065
     Dates: start: 20161101, end: 20180919
  3. CLOPIDOGREL ZENTIVA [Concomitant]
     Active Substance: CLOPIDOGREL BISULFATE
     Indication: PRODUCT USED FOR UNKNOWN INDICATION
     Dosage: 1 DF, QD (1 IN THE MORNING EVERY 2 DAYS)
     Route: 065
  4. SPIRONOLACTONE. [Concomitant]
     Active Substance: SPIRONOLACTONE
     Indication: PRODUCT USED FOR UNKNOWN INDICATION
     Dosage: 1 DF, QD (1 IN THE MORNING)
     Route: 065
     Dates: start: 20171207, end: 20180919
  5. LOVABETA [Concomitant]
     Indication: PRODUCT USED FOR UNKNOWN INDICATION
     Dosage: 1 DF, QD (1 IN THE EVENING)
     Route: 065
     Dates: start: 20180814
  6. TOPIRAMATE. [Concomitant]
     Active Substance: TOPIRAMATE
     Indication: PRODUCT USED FOR UNKNOWN INDICATION
     Dosage: 0.5 DF, QD
     Route: 065
     Dates: start: 20170101
  7. ENTRESTO [Suspect]
     Active Substance: SACUBITRIL\VALSARTAN
     Indication: CARDIAC FAILURE
     Dosage: 0.5 DF (24 MG SACUBITRIL,26 MG VALSARTAN), BID
     Route: 065
     Dates: start: 20170306
  8. ENTRESTO [Suspect]
     Active Substance: SACUBITRIL\VALSARTAN
     Dosage: 0.5 DF (49MG SACUBITRIL,51MG VALSARTAN), BID
     Route: 065
     Dates: start: 20170306, end: 20170816
  9. ENTRESTO [Suspect]
     Active Substance: SACUBITRIL\VALSARTAN
     Dosage: 1 DF(24 MG OF SACUBITRIL/26 MG OF VALSARTAN), UNK
     Route: 048
     Dates: start: 20170816, end: 20180712
  10. CLOPIDOGREL ZENTIVA [Concomitant]
     Active Substance: CLOPIDOGREL BISULFATE
     Dosage: 1 DF, EVERY 3 DAYS
     Route: 065
     Dates: start: 20180806
  11. NOVALGIN (METAMIZOLE SODIUM) [Concomitant]
     Active Substance: METAMIZOLE SODIUM
     Indication: PRODUCT USED FOR UNKNOWN INDICATION
     Dosage: 40 MG, TID
     Route: 065
  12. PANTOPRAZOLE [Concomitant]
     Active Substance: PANTOPRAZOLE
     Indication: PRODUCT USED FOR UNKNOWN INDICATION
     Dosage: 20 MG, BID (1 IN EACH MORNING AND EVENING)
     Route: 065

REACTIONS (12)
  - Ejection fraction decreased [Unknown]
  - Calculus bladder [Unknown]
  - Duodenitis [Unknown]
  - Cardiac failure [Unknown]
  - Pleural effusion [Unknown]
  - Chest pain [Recovered/Resolved]
  - Musculoskeletal pain [Recovered/Resolved]
  - Aortic aneurysm [Unknown]
  - High density lipoprotein decreased [Unknown]
  - Shunt occlusion [Recovered/Resolved]
  - Blood cholesterol increased [Unknown]
  - Blood glucose increased [Unknown]

NARRATIVE: CASE EVENT DATE: 20180302
